FAERS Safety Report 8200624-X (Version None)
Quarter: 2012Q1

REPORT INFORMATION
  Report Type: 
  Country: None (occurrence: None)
  Receive Date: 20120312
  Receipt Date: 20120301
  Transmission Date: 20120608
  Serious: Yes (Other)
  Sender: FDA-Public Use
  Company Number: US-BRISTOL-MYERS SQUIBB COMPANY-14074819

PATIENT
  Age: 58 Year
  Sex: Female
  Weight: 75 kg

DRUGS (4)
  1. TEGRETOL [Concomitant]
     Dates: start: 19940301
  2. LISINOPRIL [Concomitant]
     Dosage: 1 DOSAGE FORM = 10/12.5 MG
     Route: 048
     Dates: start: 19940101
  3. PRAVACHOL [Suspect]
     Indication: BLOOD CHOLESTEROL INCREASED
     Dosage: INITIALLY 40 MG AND THEN DOSE INCREASED TO 80 MG
     Route: 048
     Dates: start: 19950101
  4. BONIVA [Concomitant]
     Route: 048

REACTIONS (4)
  - MEMORY IMPAIRMENT [None]
  - BACK INJURY [None]
  - FALL [None]
  - RIB FRACTURE [None]
